FAERS Safety Report 4313968-9 (Version None)
Quarter: 2004Q1

REPORT INFORMATION
  Report Type: 
  Country: None (occurrence: None)
  Receive Date: 20040305
  Receipt Date: 20040302
  Transmission Date: 20041129
  Serious: Yes (Hospitalization)
  Sender: FDA-Public Use
  Company Number: TCI2004A00754

PATIENT

DRUGS (2)
  1. LANSOPRAZOLE [Suspect]
     Indication: PROPHYLAXIS AGAINST GASTROINTESTINAL ULCER
     Dosage: 30 MG (30 MG, 1 IN 1 D) PER ORAL
     Route: 048
  2. STEROIDS (CORTICOSTEROIDS) [Concomitant]

REACTIONS (4)
  - ASCITES [None]
  - GALLBLADDER NON-FUNCTIONING [None]
  - GASTROINTESTINAL MOTILITY DISORDER [None]
  - RETROPERITONEAL OEDEMA [None]
